FAERS Safety Report 9236353 (Version 1)
Quarter: 2013Q2

REPORT INFORMATION
  Report Type: Spontaneous
  Country: US (occurrence: US)
  Receive Date: 20130417
  Receipt Date: 20130417
  Transmission Date: 20140414
  Serious: No
  Sender: FDA-Public Use
  Company Number: US-BAUSCH-BL-2013-001173

PATIENT
  Age: 60 Year
  Sex: Female

DRUGS (2)
  1. DORZOLAMIDE HYDROCHLORIDE OPHTHALMIC SOLUTION 2% [Suspect]
     Indication: GLAUCOMA
     Dosage: ONE DROP IN EACH EYE THREE TIMES DAILY
     Route: 048
     Dates: start: 2012
  2. BRIMONIDINE [Concomitant]
     Indication: GLAUCOMA

REACTIONS (1)
  - Vision blurred [Not Recovered/Not Resolved]
